FAERS Safety Report 7939022-2 (Version None)
Quarter: 2011Q4

REPORT INFORMATION
  Report Type: 
  Country: None (occurrence: None)
  Receive Date: 20111124
  Receipt Date: 20111121
  Transmission Date: 20120403
  Serious: Yes (Other)
  Sender: FDA-Public Use
  Company Number: US-PFIZER INC-2010088777

PATIENT
  Sex: Female
  Weight: 53.968 kg

DRUGS (11)
  1. CHANTIX [Suspect]
     Indication: SMOKING CESSATION THERAPY
     Dosage: 0.5 MG, 1X/DAY
     Route: 048
     Dates: start: 20100601, end: 20100101
  2. CHANTIX [Suspect]
     Dosage: UNK
     Route: 048
     Dates: start: 20111120
  3. CHANTIX [Suspect]
     Dosage: UNK
     Route: 048
     Dates: start: 20100601, end: 20100601
  4. LUNESTA [Concomitant]
     Indication: SLEEP DISORDER
     Dosage: UNK
  5. CHANTIX [Suspect]
     Dosage: 0.5 MG, 1X/DAY
     Route: 048
     Dates: start: 20100601, end: 20101101
  6. CHANTIX [Suspect]
     Dosage: 1MG, UNK
     Route: 048
  7. ULTRAM [Concomitant]
     Dosage: UNK
  8. CHANTIX [Suspect]
     Dosage: 1 MG, 2X/DAY
     Route: 048
     Dates: start: 20100101, end: 20100101
  9. CHANTIX [Suspect]
     Dosage: 0.5MG IN THE MORNING AND 1MG AT NIGHT
     Route: 048
     Dates: start: 20100101, end: 20100101
  10. CHANTIX [Suspect]
     Dosage: UNK
     Route: 048
     Dates: start: 20110618
  11. INDERAL [Concomitant]
     Indication: MITRAL VALVE PROLAPSE
     Dosage: 0.5 MG, UNK

REACTIONS (2)
  - WEIGHT DECREASED [None]
  - DEPRESSED MOOD [None]
